FAERS Safety Report 15877113 (Version 1)
Quarter: 2019Q1

REPORT INFORMATION
  Report Type: Report from Study
  Country: US (occurrence: US)
  Receive Date: 20190128
  Receipt Date: 20190128
  Transmission Date: 20190417
  Serious: Yes (Hospitalization, Other)
  Sender: FDA-Public Use
  Company Number: US-SAKK-2019SA014122AA

PATIENT
  Age: 80 Year
  Sex: Male

DRUGS (1)
  1. INSULIN GLARGINE [Suspect]
     Active Substance: INSULIN GLARGINE
     Indication: TYPE 2 DIABETES MELLITUS
     Dosage: 64 OR 65 UNITS, QD
     Route: 058

REACTIONS (17)
  - Gait inability [Not Recovered/Not Resolved]
  - Herpes zoster [Recovered/Resolved]
  - Anger [Recovered/Resolved]
  - Screaming [Recovered/Resolved]
  - Nerve compression [Not Recovered/Not Resolved]
  - Paraesthesia [Not Recovered/Not Resolved]
  - Irritability [Recovered/Resolved]
  - Hyperhidrosis [Recovered/Resolved]
  - Disorientation [Recovered/Resolved]
  - Blood glucose fluctuation [Recovered/Resolved]
  - Diabetic neuropathy [Not Recovered/Not Resolved]
  - Pain [Recovered/Resolved]
  - Dysarthria [Recovered/Resolved]
  - Dizziness [Recovered/Resolved]
  - Diabetic nephropathy [Not Recovered/Not Resolved]
  - Balance disorder [Recovered/Resolved]
  - Tremor [Recovered/Resolved]
